FAERS Safety Report 4543377-9 (Version None)
Quarter: 2005Q1

REPORT INFORMATION
  Report Type: 
  Country: None (occurrence: None)
  Receive Date: 20050103
  Receipt Date: 20041224
  Transmission Date: 20050727
  Serious: Yes (Other)
  Sender: FDA-Public Use
  Company Number: 200413998JP

PATIENT
  Age: 61 Year
  Sex: Male

DRUGS (9)
  1. KETEK [Suspect]
     Indication: LARYNGOPHARYNGITIS
     Route: 048
     Dates: start: 20041215, end: 20041217
  2. KETEK [Suspect]
     Indication: SINUSITIS
     Route: 048
     Dates: start: 20041215, end: 20041217
  3. AMLODIN [Concomitant]
     Indication: HYPERTENSION
     Route: 048
  4. TROXSIN [Concomitant]
  5. CLARITIN [Concomitant]
     Route: 048
  6. AZUNOL [Concomitant]
     Route: 049
  7. FAD [Concomitant]
  8. MUCODYNE [Concomitant]
  9. CALONAL [Concomitant]

REACTIONS (4)
  - DIZZINESS [None]
  - FALL [None]
  - LOSS OF CONSCIOUSNESS [None]
  - LOWER LIMB FRACTURE [None]
